FAERS Safety Report 5619390-7 (Version None)
Quarter: 2008Q1

REPORT INFORMATION
  Report Type: 
  Country: None (occurrence: None)
  Receive Date: 20080114
  Receipt Date: 20061128
  Transmission Date: 20080703
  Serious: Yes (Other)
  Sender: FDA-Public Use
  Company Number: A03200607121

PATIENT
  Sex: Male

DRUGS (4)
  1. PLAVIX [Suspect]
     Indication: CEREBROVASCULAR ACCIDENT PROPHYLAXIS
     Dosage: 75 MG, QD, ORAL
     Route: 048
  2. LISINOPRIL [Concomitant]
  3. PROMETHAZINE [Concomitant]
  4. HYDROCODONE BITARTRATE [Concomitant]

REACTIONS (1)
  - ARTERIAL THROMBOSIS [None]
